FAERS Safety Report 7099243-0 (Version None)
Quarter: 2010Q4

REPORT INFORMATION
  Report Type: 
  Country: None (occurrence: None)
  Receive Date: 20101105
  Receipt Date: 20101021
  Transmission Date: 20110411
  Serious: Yes (Other)
  Sender: FDA-Public Use
  Company Number: DSJ-2010-18951

PATIENT
  Age: 67 Year
  Sex: Male
  Weight: 67.3 kg

DRUGS (6)
  1. OLMESARTAN MEDOXOMIL [Suspect]
     Indication: ESSENTIAL HYPERTENSION
     Dosage: 5 MG, PER ORAL, 10 MG, PER ORAL
     Route: 048
     Dates: start: 20100702, end: 20100915
  2. OLMESARTAN MEDOXOMIL [Suspect]
     Indication: ESSENTIAL HYPERTENSION
     Dosage: 5 MG, PER ORAL, 10 MG, PER ORAL
     Route: 048
     Dates: start: 20100916, end: 20101002
  3. FASTIC (NATEGLINIDE) (NATEGLINIDE) [Concomitant]
  4. MEDET (METFORMIN HYDROCHLORIDE) (METFORMIN HYDROCHLORIDE) [Concomitant]
  5. CRESTOR (ROSUVASTIN) (ROSUVASTIN) [Concomitant]
  6. ZETIA [Concomitant]

REACTIONS (1)
  - BLOOD PRESSURE INCREASED [None]
